FAERS Safety Report 7122527-4 (Version None)
Quarter: 2010Q4

REPORT INFORMATION
  Report Type: 
  Country: None (occurrence: None)
  Receive Date: 20101124
  Receipt Date: 20101118
  Transmission Date: 20110411
  Serious: Yes (Other)
  Sender: FDA-Public Use
  Company Number: ZA-ABBOTT-10P-143-0687010-00

PATIENT
  Age: 4 Year
  Sex: Male

DRUGS (1)
  1. ULTANE [Suspect]
     Indication: ANAESTHESIA
     Route: 055
     Dates: start: 20101118, end: 20101118

REACTIONS (1)
  - AIRWAY BURNS [None]
